FAERS Safety Report 6349999-7 (Version None)
Quarter: 2009Q3

REPORT INFORMATION
  Report Type: 
  Country: None (occurrence: None)
  Receive Date: 20090911
  Receipt Date: 20090622
  Transmission Date: 20100115
  Serious: No
  Sender: FDA-Public Use
  Company Number: US-ABBOTT-06P-163-0347285-00

PATIENT
  Sex: Female
  Weight: 52.21 kg

DRUGS (8)
  1. HUMIRA [Suspect]
     Indication: RHEUMATOID ARTHRITIS
     Route: 058
     Dates: start: 20060801
  2. FOLIC ACID [Concomitant]
     Indication: VITAMIN SUPPLEMENTATION
     Route: 048
     Dates: start: 20050101
  3. HYDROXYCHLOROQUINE SULFATE [Concomitant]
     Indication: RHEUMATOID ARTHRITIS
     Route: 048
     Dates: start: 20050101
  4. MELOXICAM [Concomitant]
     Indication: PAIN
     Route: 048
     Dates: start: 20050101
  5. METHOTREXATE [Concomitant]
     Indication: RHEUMATOID ARTHRITIS
     Route: 048
     Dates: start: 20050101
  6. OMEPRAZOLE [Concomitant]
     Indication: GASTROOESOPHAGEAL REFLUX DISEASE
     Route: 048
     Dates: start: 20050101
  7. SINGULAIR [Concomitant]
     Indication: ASTHMA
     Route: 048
     Dates: start: 20050101
  8. ANOVLAR [Concomitant]
     Indication: CONTRACEPTION
     Route: 048
     Dates: start: 20030101

REACTIONS (1)
  - INCORRECT DOSE ADMINISTERED [None]
